FAERS Safety Report 10014449 (Version 2)
Quarter: 2014Q2

REPORT INFORMATION
  Report Type: Report from Study
  Country: IT (occurrence: IT)
  Receive Date: 20140317
  Receipt Date: 20140512
  Transmission Date: 20141212
  Serious: Yes (Hospitalization)
  Sender: FDA-Public Use
  Company Number: IT-CELGENEUS-083-C4047-14030827

PATIENT
  Age: 71 Year
  Sex: Female

DRUGS (11)
  1. CC-4047 [Suspect]
     Indication: PLASMA CELL MYELOMA
     Dosage: 4 MILLIGRAM
     Route: 048
     Dates: start: 20130619, end: 20130716
  2. CC-4047 [Suspect]
     Dosage: 2 MILLIGRAM
     Route: 048
     Dates: start: 20140206, end: 20140303
  3. DEXAMETHASONE [Suspect]
     Indication: PLASMA CELL MYELOMA
     Dosage: 40 MILLIGRAM
     Route: 048
     Dates: start: 20130619, end: 20130716
  4. DEXAMETHASONE [Suspect]
     Dosage: 40 MILLIGRAM
     Route: 048
     Dates: start: 20140206, end: 20140305
  5. ATENOLOLO [Concomitant]
     Indication: HYPERTENSION
     Dosage: 100 MILLIGRAM
     Route: 048
     Dates: start: 20130619
  6. ATENOLOLO [Concomitant]
     Dosage: 50 MILLIGRAM
     Route: 048
     Dates: start: 20140309, end: 20140312
  7. ARANESP [Concomitant]
     Indication: ANAEMIA
     Dosage: 1 VIAL
     Route: 041
     Dates: start: 20130619
  8. CLEXANE [Concomitant]
     Indication: PROPHYLAXIS
     Dosage: 1 VIAL
     Route: 041
     Dates: start: 20130619
  9. CLEXANE [Concomitant]
     Dosage: 4000 IU (INTERNATIONAL UNIT)
     Route: 058
     Dates: start: 20140307, end: 20140311
  10. LOSEC [Concomitant]
     Indication: GASTRIC ULCER
     Dosage: 40 MILLIGRAM
     Route: 041
     Dates: start: 20140307, end: 20140309
  11. LANSOPRAZOLE [Concomitant]
     Indication: GASTRIC ULCER
     Dosage: 30 MILLIGRAM
     Route: 048
     Dates: start: 20140309, end: 20140312

REACTIONS (1)
  - Anal abscess [Recovered/Resolved]
